FAERS Safety Report 10015076 (Version 2)
Quarter: 2014Q2

REPORT INFORMATION
  Report Type: Spontaneous
  Country: US (occurrence: US)
  Receive Date: 20140317
  Receipt Date: 20140401
  Transmission Date: 20141212
  Serious: Yes (Other)
  Sender: FDA-Public Use
  Company Number: US-JNJFOC-20140303532

PATIENT
  Sex: Male

DRUGS (3)
  1. ABIRATERONE ACETATE [Suspect]
     Indication: PROSTATE CANCER METASTATIC
     Route: 065
  2. DUTASTERIDE [Suspect]
     Indication: PROSTATE CANCER METASTATIC
     Route: 065
  3. PREDNISONE [Suspect]
     Indication: PROSTATE CANCER METASTATIC
     Route: 065

REACTIONS (6)
  - Hypertension [Unknown]
  - Liver function test abnormal [Unknown]
  - Condition aggravated [Unknown]
  - Hypokalaemia [Unknown]
  - Fatigue [Unknown]
  - Oedema [Unknown]
